FAERS Safety Report 4445563-5 (Version None)
Quarter: 2004Q3

REPORT INFORMATION
  Report Type: 
  Country: None (occurrence: None)
  Receive Date: 20040902
  Receipt Date: 20040820
  Transmission Date: 20050211
  Serious: Yes (Other)
  Sender: FDA-Public Use
  Company Number: TEST00304002880

PATIENT
  Age: 35 Year
  Sex: Male

DRUGS (1)
  1. TESTOSTERONE [Suspect]
     Indication: KLINEFELTER'S SYNDROME
     Dosage: DAILY TD
     Route: 062
     Dates: start: 20040601

REACTIONS (1)
  - VISUAL ACUITY REDUCED [None]
